FAERS Safety Report 15698052 (Version 6)
Quarter: 2022Q4

REPORT INFORMATION
  Report Type: Spontaneous
  Country: US (occurrence: US)
  Receive Date: 20181207
  Receipt Date: 20221027
  Transmission Date: 20230113
  Serious: No
  Sender: FDA-Public Use
  Company Number: US-PFIZER INC-2018007178

PATIENT
  Age: 2 Year
  Sex: Female
  Weight: 13.605 kg

DRUGS (3)
  1. GENOTROPIN [Suspect]
     Active Substance: SOMATROPIN
     Indication: Prader-Willi syndrome
     Dosage: ALTERNATE 0.2MG AND 0.3MG, 7 DAYS A WEEK
     Dates: start: 20171212
  2. GENOTROPIN [Suspect]
     Active Substance: SOMATROPIN
     Dosage: ALTERNATE 0.2MG AND 0.3MG, 7 DAYS A WEEK
     Dates: start: 20171212
  3. GENOTROPIN [Suspect]
     Active Substance: SOMATROPIN
     Dosage: 0.2 MG, 1X/DAY (0.2MG ONCE A DAY BY INJECTION)
     Dates: start: 20171221

REACTIONS (6)
  - Insulin-like growth factor increased [Unknown]
  - Bone density increased [Unknown]
  - Wrong technique in device usage process [Unknown]
  - Device breakage [Unknown]
  - Drug dose omission by device [Unknown]
  - Expired device used [Unknown]

NARRATIVE: CASE EVENT DATE: 20180106
